FAERS Safety Report 12737141 (Version 3)
Quarter: 2016Q4

REPORT INFORMATION
  Report Type: Report from Study
  Country: US (occurrence: US)
  Receive Date: 20160913
  Receipt Date: 20161110
  Transmission Date: 20170207
  Serious: Yes (Death, Hospitalization, Other)
  Sender: FDA-Public Use
  Company Number: US-OTSUKA-2016_021779

PATIENT
  Age: 73 Year
  Sex: Male
  Weight: 104 kg

DRUGS (2)
  1. *JNJ-56022473 [Suspect]
     Active Substance: INVESTIGATIONAL PRODUCT
     Indication: ACUTE MYELOID LEUKAEMIA
     Dosage: 779 MG, CYCLE 1 DAY 8
     Route: 042
     Dates: start: 20160211, end: 20160211
  2. DECITABINE. [Suspect]
     Active Substance: DECITABINE
     Indication: ACUTE MYELOID LEUKAEMIA
     Dosage: 41 MG
     Route: 042
     Dates: start: 20160204

REACTIONS (4)
  - Leukocytosis [Recovered/Resolved]
  - Pneumonia [Fatal]
  - Dyspnoea [Not Recovered/Not Resolved]
  - Fatigue [Not Recovered/Not Resolved]

NARRATIVE: CASE EVENT DATE: 20160822
